FAERS Safety Report 17476203 (Version 1)
Quarter: 2020Q1

REPORT INFORMATION
  Report Type: Report from Study
  Country: CL (occurrence: CL)
  Receive Date: 20200228
  Receipt Date: 20200228
  Transmission Date: 20200409
  Serious: Yes (Hospitalization)
  Sender: FDA-Public Use
  Company Number: CL-JNJFOC-20190935274

PATIENT
  Sex: Female

DRUGS (1)
  1. SIMPONI [Suspect]
     Active Substance: GOLIMUMAB
     Indication: PSORIATIC ARTHROPATHY
     Dosage: 2MG/KG
     Route: 042
     Dates: start: 2017

REACTIONS (1)
  - Influenza [Recovering/Resolving]
